FAERS Safety Report 4848764-7 (Version None)
Quarter: 2005Q4

REPORT INFORMATION
  Report Type: 
  Country: None (occurrence: None)
  Receive Date: 20051206
  Receipt Date: 20051121
  Transmission Date: 20060501
  Serious: Yes (Life-Threatening, Hospitalization)
  Sender: FDA-Public Use
  Company Number: GB200511002172

PATIENT
  Age: 40 Year
  Sex: Female

DRUGS (7)
  1. ZYPREXA [Suspect]
     Indication: HYPOMANIA
     Dosage: 25 MG, ORAL
     Route: 048
  2. MORPHINE [Concomitant]
  3. BACLOFEN [Concomitant]
  4. DICLOFENAC (DICLOFENAC) [Concomitant]
  5. PARACETAMOL (PARACETAMOL) [Concomitant]
  6. OMEPRAZOLE [Concomitant]
  7. VALPROIC ACID [Concomitant]

REACTIONS (5)
  - DRUG INTERACTION [None]
  - DYSPHAGIA [None]
  - PNEUMONIA ASPIRATION [None]
  - RESPIRATORY DEPRESSION [None]
  - SEDATION [None]
